FAERS Safety Report 15036259 (Version 1)
Quarter: 2018Q2

REPORT INFORMATION
  Report Type: Spontaneous
  Country: FR (occurrence: FR)
  Receive Date: 20180620
  Receipt Date: 20180620
  Transmission Date: 20180711
  Serious: Yes (Hospitalization)
  Sender: FDA-Public Use
  Company Number: FR-JNJFOC-20180623560

PATIENT
  Age: 85 Year
  Sex: Female
  Weight: 71 kg

DRUGS (1)
  1. RISPERIDONE. [Suspect]
     Active Substance: RISPERIDONE
     Indication: AGITATION
     Route: 048
     Dates: start: 20180515, end: 20180604

REACTIONS (2)
  - Fall [Unknown]
  - Hyponatraemia [Recovered/Resolved]

NARRATIVE: CASE EVENT DATE: 20180602
